FAERS Safety Report 4785971-6 (Version None)
Quarter: 2005Q3

REPORT INFORMATION
  Report Type: 
  Country: None (occurrence: None)
  Receive Date: 20050930
  Receipt Date: 20050930
  Transmission Date: 20060218
  Serious: Yes (Death)
  Sender: FDA-Public Use
  Company Number: None

PATIENT
  Age: 83 Year
  Sex: Male

DRUGS (10)
  1. TENECTEPLASE [Suspect]
     Indication: EMBOLISM
     Dosage: 0.5MG/HOUR CONTINUOUS INTRA-ARTE
     Route: 013
     Dates: start: 20041116, end: 20041117
  2. HEPARIN [Suspect]
     Indication: EMBOLISM
     Dosage: 400 UNITS/HOUR CONTINUOUS INTRA-ARTE
     Route: 013
     Dates: start: 20041116, end: 20041117
  3. FLOVENT [Concomitant]
  4. MORPHINE [Concomitant]
  5. ALBUTEROL/ATROVENT [Concomitant]
  6. HYZAAR [Concomitant]
  7. AVAPRO [Concomitant]
  8. SPIRONOLACTONE [Concomitant]
  9. CALAN [Concomitant]
  10. CELEBREX [Concomitant]

REACTIONS (8)
  - ABDOMINAL PAIN [None]
  - AORTIC DISSECTION [None]
  - AORTIC RUPTURE [None]
  - HYPOTENSION [None]
  - INTERMITTENT CLAUDICATION [None]
  - ISCHAEMIA [None]
  - LIVEDO RETICULARIS [None]
  - PAIN IN EXTREMITY [None]
